FAERS Safety Report 25194991 (Version 2)
Quarter: 2025Q2

REPORT INFORMATION
  Report Type: Report from Study
  Country: CA (occurrence: CA)
  Receive Date: 20250415
  Receipt Date: 20250519
  Transmission Date: 20250717
  Serious: Yes (Other)
  Sender: ABBVIE
  Company Number: CA-ABBVIE-6219001

PATIENT
  Age: 59 Year
  Sex: Male
  Weight: 100.5 kg

DRUGS (1)
  1. HUMIRA [Suspect]
     Active Substance: ADALIMUMAB
     Indication: Ankylosing spondylitis
     Route: 058
     Dates: end: 202504

REACTIONS (4)
  - Systemic lupus erythematosus [Recovering/Resolving]
  - Drug eruption [Unknown]
  - Dermatitis psoriasiform [Unknown]
  - Dermatitis exfoliative generalised [Unknown]

NARRATIVE: CASE EVENT DATE: 20241101
